FAERS Safety Report 6383391-4 (Version None)
Quarter: 2009Q4

REPORT INFORMATION
  Report Type: 
  Country: None (occurrence: None)
  Receive Date: 20091001
  Receipt Date: 20090831
  Transmission Date: 20100525
  Serious: No
  Sender: FDA-Public Use
  Company Number: PR-BAYER-200931808NA

PATIENT
  Age: 57 Year
  Sex: Female

DRUGS (3)
  1. AVELOX [Suspect]
     Indication: SINUSITIS
     Dosage: UNIT DOSE: 400 MG
  2. MEVACOR [Concomitant]
     Indication: DYSLIPIDAEMIA
  3. WELLBUTRIN [Concomitant]
     Indication: DEPRESSION

REACTIONS (3)
  - HYPERSENSITIVITY [None]
  - PRURITUS [None]
  - RASH GENERALISED [None]
